FAERS Safety Report 7545525-5 (Version None)
Quarter: 2011Q2

REPORT INFORMATION
  Report Type: 
  Country: None (occurrence: None)
  Receive Date: 20110613
  Receipt Date: 20110613
  Transmission Date: 20111010
  Serious: Yes (Hospitalization)
  Sender: FDA-Public Use
  Company Number: None

PATIENT
  Age: 42 Year
  Sex: Female
  Weight: 57.7 kg

DRUGS (1)
  1. GEMCITABINE HYDROCHLORIDE [Suspect]
     Dosage: 4510 MG
     Dates: end: 20110602

REACTIONS (5)
  - HAEMOGLOBIN DECREASED [None]
  - CELLULITIS [None]
  - ERYTHEMA [None]
  - OEDEMA PERIPHERAL [None]
  - OCCULT BLOOD POSITIVE [None]
